FAERS Safety Report 24586039 (Version 3)
Quarter: 2025Q1

REPORT INFORMATION
  Report Type: Other
  Country: US (occurrence: US)
  Receive Date: 20241106
  Receipt Date: 20250218
  Transmission Date: 20250409
  Serious: No
  Sender: TRAVERE THERAPEUTICS
  Company Number: US-TRAVERE-2024TVT00977

PATIENT
  Age: 61 Year
  Sex: Male

DRUGS (3)
  1. FILSPARI [Suspect]
     Active Substance: SPARSENTAN
     Indication: IgA nephropathy
     Route: 048
     Dates: start: 20240927
  2. FILSPARI [Suspect]
     Active Substance: SPARSENTAN
     Route: 048
  3. FILSPARI [Suspect]
     Active Substance: SPARSENTAN
     Dosage: DOSE REDUCED
     Route: 048

REACTIONS (11)
  - Hot flush [Unknown]
  - Hypotension [Unknown]
  - Headache [Unknown]
  - Contusion [Unknown]
  - Asthenia [Unknown]
  - Oropharyngeal pain [Unknown]
  - Scrotal dermatitis [Unknown]
  - Rash [Unknown]
  - Chromaturia [Unknown]
  - Alopecia [Unknown]
  - Constipation [Unknown]

NARRATIVE: CASE EVENT DATE: 20240927
